FAERS Safety Report 12232190 (Version 4)
Quarter: 2017Q1

REPORT INFORMATION
  Report Type: Spontaneous
  Country: US (occurrence: US)
  Receive Date: 20160401
  Receipt Date: 20170323
  Transmission Date: 20170428
  Serious: No
  Sender: FDA-Public Use
  Company Number: US-PFIZER INC-2016188648

PATIENT
  Age: 15 Year
  Sex: Male
  Weight: 42 kg

DRUGS (7)
  1. GENOTROPIN [Suspect]
     Active Substance: SOMATROPIN
     Indication: GROWTH HORMONE DEFICIENCY
     Dosage: 1.2 MG, UNK
     Dates: start: 20160121, end: 20160327
  2. TYLENOL [Concomitant]
     Active Substance: ACETAMINOPHEN
     Dosage: UNK, AS NEEDED
  3. LORATADINE. [Concomitant]
     Active Substance: LORATADINE
     Dosage: UNK
  4. GENOTROPIN [Suspect]
     Active Substance: SOMATROPIN
     Indication: FAILURE TO THRIVE
     Dosage: 1 MG, DAILY
     Route: 058
     Dates: start: 201504
  5. GENOTROPIN [Suspect]
     Active Substance: SOMATROPIN
     Dosage: UNK
  6. GENOTROPIN [Suspect]
     Active Substance: SOMATROPIN
     Indication: BODY HEIGHT BELOW NORMAL
     Dosage: 1.2 MG, DAILY
     Route: 058
     Dates: start: 20150714
  7. GENOTROPIN [Suspect]
     Active Substance: SOMATROPIN
     Dosage: 1.4 MG, DAILY (AT NIGHT)
     Route: 051

REACTIONS (2)
  - Aggression [Recovered/Resolved]
  - Nightmare [Unknown]

NARRATIVE: CASE EVENT DATE: 20160325
